FAERS Safety Report 23041974 (Version 1)
Quarter: 2023Q4

REPORT INFORMATION
  Report Type: Spontaneous
  Country: None (occurrence: CZ)
  Receive Date: 20231007
  Receipt Date: 20231007
  Transmission Date: 20240109
  Serious: Yes (Life-Threatening, Other)
  Sender: FDA-Public Use
  Company Number: CZ-B.Braun Medical Inc.-2146804

PATIENT
  Age: 42 Year
  Sex: Female

DRUGS (8)
  1. MEROPENEM\SODIUM CHLORIDE [Suspect]
     Active Substance: MEROPENEM\SODIUM CHLORIDE
     Indication: Antibiotic therapy
  2. VORICONAZOLE [Suspect]
     Active Substance: VORICONAZOLE
  3. LEVOFLOXACIN [Suspect]
     Active Substance: LEVOFLOXACIN
  4. METRONIDAZOLE [Suspect]
     Active Substance: METRONIDAZOLE
  5. MOXIFLOXACIN [Suspect]
     Active Substance: MOXIFLOXACIN
  6. FLUCONAZOLE [Concomitant]
     Active Substance: FLUCONAZOLE
  7. CORTICOSTEROID NOS [Concomitant]
     Active Substance: CORTICOSTEROID NOS
  8. CEFTRIAXONE [Concomitant]
     Active Substance: CEFTRIAXONE\CEFTRIAXONE SODIUM

REACTIONS (5)
  - Respiratory acidosis [None]
  - Sepsis [None]
  - Disease progression [None]
  - Respiratory failure [None]
  - Hypoxia [None]
